FAERS Safety Report 6232140-9 (Version None)
Quarter: 2009Q2

REPORT INFORMATION
  Report Type: 
  Country: None (occurrence: None)
  Receive Date: 20090617
  Receipt Date: 20090608
  Transmission Date: 20091009
  Serious: Yes (Other)
  Sender: FDA-Public Use
  Company Number: US-ROCHE-637750

PATIENT
  Sex: Female
  Weight: 83 kg

DRUGS (1)
  1. CAPECITABINE [Suspect]
     Dosage: DOSE: 500 MG TABLET: 2 TAB AM AND 1 TAB PM; 150 MG TAB: 1 TAB AM AND 1 TAB PM
     Route: 048
     Dates: start: 20090220, end: 20090601

REACTIONS (1)
  - LIVER TRANSPLANT [None]
